FAERS Safety Report 6181173-X (Version None)
Quarter: 2009Q2

REPORT INFORMATION
  Report Type: 
  Country: None (occurrence: None)
  Receive Date: 20090504
  Receipt Date: 20090422
  Transmission Date: 20091009
  Serious: Yes (Other)
  Sender: FDA-Public Use
  Company Number: 2009US001253

PATIENT
  Age: 2 Year
  Sex: Female

DRUGS (2)
  1. MYCAMINE [Suspect]
     Indication: CANDIDIASIS
  2. AMBISOME [Suspect]
     Indication: CANDIDIASIS

REACTIONS (2)
  - RASH ERYTHEMATOUS [None]
  - SYSTEMIC INFLAMMATORY RESPONSE SYNDROME [None]
